FAERS Safety Report 10070743 (Version 1)
Quarter: 2014Q2

REPORT INFORMATION
  Report Type: Spontaneous
  Country: US (occurrence: None)
  Receive Date: 20140408
  Receipt Date: 20140408
  Transmission Date: 20141212
  Serious: Yes (Disabling, Other)
  Sender: FDA-Public Use
  Company Number: 201403105

PATIENT
  Age: 60 Year
  Sex: Male

DRUGS (2)
  1. TESTIM (TESTOSTERONE) [Suspect]
     Indication: BLOOD TESTOSTERONE DECREASED
     Route: 062
     Dates: start: 2007, end: 2012
  2. ANDROGEL [Suspect]
     Indication: BLOOD TESTOSTERONE DECREASED
     Route: 061

REACTIONS (10)
  - Acute coronary syndrome [None]
  - Coronary artery disease [None]
  - Left ventricular dysfunction [None]
  - Marital problem [None]
  - Pain [None]
  - Cardiac disorder [None]
  - Injury [None]
  - Anxiety [None]
  - Fear [None]
  - Economic problem [None]
